FAERS Safety Report 6448354-9 (Version None)
Quarter: 2009Q4

REPORT INFORMATION
  Report Type: 
  Country: None (occurrence: None)
  Receive Date: 20091120
  Receipt Date: 20091111
  Transmission Date: 20100525
  Serious: Yes (Hospitalization)
  Sender: FDA-Public Use
  Company Number: US-ALEXION-A200900960

PATIENT
  Sex: Female
  Weight: 93.696 kg

DRUGS (11)
  1. SOLIRIS [Suspect]
     Indication: TRANSPLANT REJECTION
     Dosage: 1200 MG BID
     Route: 042
  2. AMBIEN [Concomitant]
     Indication: SLEEP DISORDER
     Dosage: 10 MG AT HS PRN
     Route: 048
  3. AMLODIPINE [Concomitant]
     Dosage: 10 MG  (1/2 TAB) QD
     Route: 048
  4. AMIODARONE HCL [Concomitant]
     Dosage: 200 MG QD
     Route: 048
  5. COLACE [Concomitant]
     Dosage: 100 MG BID
     Route: 048
  6. MULTIVITAMIN                       /00831701/ [Concomitant]
     Dosage: 1 CAPSULE QD
     Route: 048
  7. PRILOSEC [Concomitant]
     Dosage: 20 MG QD
     Route: 048
  8. PREDNISONE [Concomitant]
     Indication: RENAL TRANSPLANT
     Dosage: 10 MG  (2 TABLETS) QD (WITH 5 MG QD = TOTAL OF 25 MG)
     Route: 048
  9. PREDNISONE [Concomitant]
     Dosage: 5 MG QD  (WITH 20 MG QD = TOTAL 25 MG)
     Route: 048
  10. TACROLIMUS [Concomitant]
     Dosage: 1 MG (5 CAPSULES) BID
     Route: 048
  11. VALCYTE [Concomitant]
     Dosage: 450 MG QD
     Route: 048

REACTIONS (1)
  - BLOOD POTASSIUM INCREASED [None]
